FAERS Safety Report 20440228 (Version 1)
Quarter: 2022Q1

REPORT INFORMATION
  Report Type: Spontaneous
  Country: US (occurrence: None)
  Receive Date: 20220205
  Receipt Date: 20220205
  Transmission Date: 20220423
  Serious: Yes (Other)
  Sender: FDA-Public Use
  Company Number: None

PATIENT
  Age: 25 Year
  Sex: Female

DRUGS (2)
  1. MONISTAT 7 [Suspect]
     Active Substance: MICONAZOLE NITRATE
     Indication: Urinary tract infection
     Dosage: OTHER QUANTITY : 7 SUPPOSITORY(IES);?FREQUENCY : DAILY;?
     Route: 067
  2. MONISTAT 7 [Suspect]
     Active Substance: MICONAZOLE NITRATE
     Indication: Bacterial vaginosis

REACTIONS (7)
  - Vaginal prolapse [None]
  - Vaginal perforation [None]
  - Vaginal odour [None]
  - Constipation [None]
  - Feeling abnormal [None]
  - Libido increased [None]
  - Crying [None]

NARRATIVE: CASE EVENT DATE: 20190801
